FAERS Safety Report 4997014-X (Version None)
Quarter: 2006Q2

REPORT INFORMATION
  Report Type: 
  Country: None (occurrence: None)
  Receive Date: 20060505
  Receipt Date: 20060420
  Transmission Date: 20061013
  Serious: Yes (Hospitalization)
  Sender: FDA-Public Use
  Company Number: US-2006-009409

PATIENT
  Age: 57 Year
  Sex: Female
  Weight: 117 kg

DRUGS (8)
  1. BETASERON [Suspect]
     Indication: RELAPSING-REMITTING MULTIPLE SCLEROSIS
     Dosage: 8 MIU, EVERY 2D, SUBCUTANEOUS
     Route: 058
     Dates: start: 20000118, end: 20060413
  2. INDERAL-SLOW RELEASE (PROPRANOLOL HYDROCHLORIDE) [Concomitant]
  3. GLYBURIDE [Concomitant]
  4. MAGNESIUM [Concomitant]
  5. PROZAC [Concomitant]
  6. WELLBUTRIN [Concomitant]
  7. NORVASC /DEN/ (AMLODIPINE BESILATE) [Concomitant]
  8. PROTONIX [Concomitant]

REACTIONS (5)
  - ABDOMINAL DISTENSION [None]
  - AUTOIMMUNE HEPATITIS [None]
  - CARDIAC FAILURE CONGESTIVE [None]
  - DYSPNOEA [None]
  - WEIGHT FLUCTUATION [None]
